FAERS Safety Report 9920577 (Version 1)
Quarter: 2014Q1

REPORT INFORMATION
  Report Type: Spontaneous
  Country: US (occurrence: US)
  Receive Date: 20140224
  Receipt Date: 20140224
  Transmission Date: 20141002
  Serious: No
  Sender: FDA-Public Use
  Company Number: US-NOVEN-13US008445

PATIENT
  Sex: Female

DRUGS (2)
  1. MINIVELLE [Suspect]
     Indication: NIGHT SWEATS
     Dosage: 0.0375MG/DAY, UNK
     Route: 062
     Dates: start: 20131125
  2. MINIVELLE [Suspect]
     Indication: HOT FLUSH

REACTIONS (4)
  - Night sweats [Recovering/Resolving]
  - Hyperhidrosis [Recovering/Resolving]
  - Hot flush [Recovering/Resolving]
  - Influenza like illness [Recovered/Resolved]
